FAERS Safety Report 21200974 (Version 1)
Quarter: 2022Q3

REPORT INFORMATION
  Report Type: Report from Study
  Country: US (occurrence: US)
  Receive Date: 20220811
  Receipt Date: 20220811
  Transmission Date: 20221027
  Serious: No
  Sender: FDA-Public Use
  Company Number: US-AURINIA PHARMACEUTICALS INC.-AUR-000933

PATIENT
  Age: 32 Year
  Sex: Female

DRUGS (1)
  1. LUPKYNIS [Suspect]
     Active Substance: VOCLOSPORIN
     Indication: Lupus nephritis
     Dosage: 23.7 MILLIGRAM, BID
     Route: 048
     Dates: start: 20210930

REACTIONS (5)
  - Abdominal distension [Unknown]
  - Weight increased [Unknown]
  - Blood pressure increased [Unknown]
  - Dyspepsia [Unknown]
  - Product administration error [Unknown]

NARRATIVE: CASE EVENT DATE: 20220527
